FAERS Safety Report 12226555 (Version 1)
Quarter: 2016Q1

REPORT INFORMATION
  Report Type: Spontaneous
  Country: US (occurrence: US)
  Receive Date: 20160331
  Receipt Date: 20160331
  Transmission Date: 20160526
  Serious: Yes (Other)
  Sender: FDA-Public Use
  Company Number: US-BECTON DICKINSON-2016BDN00047

PATIENT
  Age: 69 Year
  Sex: Female

DRUGS (3)
  1. CHLORAPREP WITH TINT [Suspect]
     Active Substance: CHLORHEXIDINE GLUCONATE\ISOPROPYL ALCOHOL
     Indication: INFECTION PROPHYLAXIS
     Dosage: FROM SHOULDER TO SHOULDER AND UP HER NECK
     Route: 061
  2. UNSPECIFIED ANTIDEPRESSANTS [Concomitant]
     Active Substance: UNSPECIFIED INGREDIENT
  3. METHYLENE BLUE. [Concomitant]
     Active Substance: METHYLENE BLUE

REACTIONS (6)
  - Application site burn [None]
  - Chemical burn of skin [Unknown]
  - Application site exfoliation [None]
  - Skin exfoliation [Unknown]
  - Application site vesicles [None]
  - Blister [Unknown]
